FAERS Safety Report 19535249 (Version 6)
Quarter: 2021Q3

REPORT INFORMATION
  Report Type: Spontaneous
  Country: DE (occurrence: DE)
  Receive Date: 20210713
  Receipt Date: 20210916
  Transmission Date: 20211014
  Serious: Yes (Other)
  Sender: FDA-Public Use
  Company Number: DE-MYLANLABS-2021M1041517

PATIENT
  Age: 70 Year
  Sex: Female

DRUGS (10)
  1. TAMOXIFEN [Suspect]
     Active Substance: TAMOXIFEN
     Indication: PRODUCT USED FOR UNKNOWN INDICATION
     Dosage: UNK
  2. PALBOCICLIB [Suspect]
     Active Substance: PALBOCICLIB
     Indication: PRODUCT USED FOR UNKNOWN INDICATION
     Dosage: UNK
     Route: 065
  3. EXEMESTANE. [Suspect]
     Active Substance: EXEMESTANE
     Indication: BREAST CANCER
     Dosage: UNK
     Route: 065
     Dates: start: 2014, end: 2014
  4. AFINITOR [Suspect]
     Active Substance: EVEROLIMUS
     Indication: BREAST CANCER
     Dosage: UNK
     Route: 065
  5. PALBOCICLIB [Suspect]
     Active Substance: PALBOCICLIB
     Dosage: 125 MILLIGRAM
  6. AFINITOR [Suspect]
     Active Substance: EVEROLIMUS
     Indication: METASTASES TO BONE
     Dosage: 10 MILLIGRAM, QD (10 MG, QD (2X5 MG))
     Route: 065
  7. ANASTROZOLE. [Suspect]
     Active Substance: ANASTROZOLE
     Indication: PRODUCT USED FOR UNKNOWN INDICATION
     Dosage: UNK
  8. EXEMESTANE. [Suspect]
     Active Substance: EXEMESTANE
     Indication: METASTASES TO BONE
     Dosage: UNK
     Route: 065
  9. AFINITOR [Suspect]
     Active Substance: EVEROLIMUS
     Dosage: 5 MILLIGRAM, QD (5 MG, QD)
     Route: 065
  10. FASLODEX [Suspect]
     Active Substance: FULVESTRANT
     Indication: PRODUCT USED FOR UNKNOWN INDICATION
     Dosage: UNK
     Route: 065

REACTIONS (31)
  - Pain [Unknown]
  - Blood lactate dehydrogenase increased [Unknown]
  - Mobility decreased [Unknown]
  - Taste disorder [Recovered/Resolved]
  - Anosmia [Recovering/Resolving]
  - White blood cell count decreased [Recovered/Resolved]
  - Gene mutation [Unknown]
  - Therapeutic product effect decreased [Unknown]
  - Bone density abnormal [Unknown]
  - Abdominal discomfort [Unknown]
  - Immunoglobulins decreased [Unknown]
  - Red blood cell count decreased [Recovered/Resolved]
  - Breast cancer recurrent [Unknown]
  - Myocardial infarction [Unknown]
  - Tumour marker increased [Recovering/Resolving]
  - Drug intolerance [Unknown]
  - Nasal dryness [Unknown]
  - Angina pectoris [Unknown]
  - Burning feet syndrome [Recovering/Resolving]
  - Globulins decreased [Unknown]
  - Contusion [Unknown]
  - Gait disturbance [Unknown]
  - Sleep disorder [Unknown]
  - Muscle spasms [Unknown]
  - Haemoglobin decreased [Recovered/Resolved]
  - Colitis microscopic [Unknown]
  - Metastases to liver [Unknown]
  - Mouth swelling [Unknown]
  - Dyspnoea [Unknown]
  - Haematocrit decreased [Recovered/Resolved]
  - Lymphocyte count decreased [Unknown]

NARRATIVE: CASE EVENT DATE: 2014
